FAERS Safety Report 9762497 (Version 1)
Quarter: 2013Q4

REPORT INFORMATION
  Report Type: Spontaneous
  Country: US (occurrence: US)
  Receive Date: 20131216
  Receipt Date: 20131216
  Transmission Date: 20140711
  Serious: No
  Sender: FDA-Public Use
  Company Number: US-BIOGENIDEC-2013BI108639

PATIENT
  Sex: Male

DRUGS (4)
  1. TECFIDERA [Suspect]
     Indication: MULTIPLE SCLEROSIS
     Route: 048
     Dates: start: 20131024
  2. TECFIDERA [Suspect]
     Indication: MULTIPLE SCLEROSIS
     Route: 048
     Dates: start: 201310
  3. LISINOPRIL [Concomitant]
  4. VITAMIN D [Concomitant]

REACTIONS (7)
  - Adverse event [Unknown]
  - Personality change [Unknown]
  - Nausea [Unknown]
  - Diarrhoea [Unknown]
  - Vomiting [Unknown]
  - Flushing [Unknown]
  - Abdominal discomfort [Unknown]
